FAERS Safety Report 23434092 (Version 1)
Quarter: 2024Q1

REPORT INFORMATION
  Report Type: Spontaneous
  Country: MX (occurrence: MX)
  Receive Date: 20240123
  Receipt Date: 20240123
  Transmission Date: 20240410
  Serious: Yes (Other)
  Sender: FDA-Public Use
  Company Number: MX-009507513-2401MEX007597

PATIENT
  Age: 57 Year
  Sex: Female

DRUGS (1)
  1. INVANZ [Suspect]
     Active Substance: ERTAPENEM SODIUM
     Indication: Kidney infection
     Dosage: 1 GRAM, DAILY
     Dates: start: 2023, end: 202312

REACTIONS (3)
  - Pseudomonas infection [Unknown]
  - Decreased immune responsiveness [Unknown]
  - General physical health deterioration [Unknown]

NARRATIVE: CASE EVENT DATE: 20240102
